FAERS Safety Report 20827793 (Version 13)
Quarter: 2022Q3

REPORT INFORMATION
  Report Type: Spontaneous
  Country: PT (occurrence: PT)
  Receive Date: 20220513
  Receipt Date: 20220629
  Transmission Date: 20221026
  Serious: Yes (Life-Threatening, Hospitalization, Other)
  Sender: FDA-Public Use
  Company Number: PT-NOVARTISPH-NVSC2022PT109778

PATIENT
  Age: 21 Year
  Sex: Female

DRUGS (9)
  1. IBUPROFEN [Suspect]
     Active Substance: IBUPROFEN
     Indication: Abdominal pain upper
     Dosage: HIGH DOSE
     Route: 048
  2. PANTOPRAZOLE [Concomitant]
     Active Substance: PANTOPRAZOLE
     Indication: Haematemesis
     Dosage: UNK
     Route: 065
  3. METAMIZOLE SODIUM [Concomitant]
     Active Substance: METAMIZOLE SODIUM
     Indication: Abdominal pain upper
     Dosage: UNK
     Route: 048
  4. METAMIZOLE SODIUM [Concomitant]
     Active Substance: METAMIZOLE SODIUM
     Indication: Pyrexia
  5. METAMIZOLE SODIUM [Concomitant]
     Active Substance: METAMIZOLE SODIUM
     Indication: Vomiting
  6. ONDANSETRON [Concomitant]
     Active Substance: ONDANSETRON
     Indication: Haematemesis
     Dosage: UNK
     Route: 065
  7. DESLORATADINE [Concomitant]
     Active Substance: DESLORATADINE
     Indication: Vomiting
     Dosage: UNK
     Route: 048
  8. DESLORATADINE [Concomitant]
     Active Substance: DESLORATADINE
     Indication: Pyrexia
  9. DESLORATADINE [Concomitant]
     Active Substance: DESLORATADINE
     Indication: Abdominal pain upper

REACTIONS (2)
  - Haemorrhagic erosive gastritis [Recovered/Resolved]
  - Intentional product misuse [Unknown]
